FAERS Safety Report 6817905-4 (Version None)
Quarter: 2010Q3

REPORT INFORMATION
  Report Type: 
  Country: None (occurrence: None)
  Receive Date: 20100706
  Receipt Date: 20100623
  Transmission Date: 20110219
  Serious: Yes (Hospitalization)
  Sender: FDA-Public Use
  Company Number: ES-WATSON-2010-08811

PATIENT
  Age: 75 Year
  Sex: Female

DRUGS (1)
  1. MONODOX [Suspect]
     Indication: INFECTION
     Dosage: 200 MG, DAILY
     Route: 048

REACTIONS (1)
  - PANCREATITIS ACUTE [None]
